FAERS Safety Report 4964674-9 (Version None)
Quarter: 2006Q2

REPORT INFORMATION
  Report Type: 
  Country: None (occurrence: None)
  Receive Date: 20060406
  Receipt Date: 20060223
  Transmission Date: 20061013
  Serious: Yes (Hospitalization)
  Sender: FDA-Public Use
  Company Number: US-MERCK-0602USA05431

PATIENT
  Age: 61 Year
  Sex: Female
  Weight: 75 kg

DRUGS (9)
  1. VIOXX [Suspect]
     Indication: ARTHRITIS
     Route: 048
     Dates: start: 20031210, end: 20040328
  2. PREMARIN [Concomitant]
     Route: 065
  3. SYNTHROID [Concomitant]
     Route: 065
  4. SINGULAIR [Concomitant]
     Route: 048
  5. CARBIDOPA AND LEVODOPA [Concomitant]
     Route: 065
  6. BUSPIRONE HYDROCHLORIDE [Concomitant]
     Route: 065
  7. AMANTADINE HYDROCHLORIDE [Concomitant]
     Route: 065
  8. ATENOLOL [Concomitant]
     Route: 065
  9. AMBIEN [Concomitant]
     Route: 065

REACTIONS (8)
  - ACUTE MYOCARDIAL INFARCTION [None]
  - BLOOD CHOLESTEROL INCREASED [None]
  - BLOOD TRIGLYCERIDES INCREASED [None]
  - BRADYCARDIA [None]
  - HYPERLIPIDAEMIA [None]
  - HYPOTENSION [None]
  - JOINT STIFFNESS [None]
  - NAUSEA [None]
